FAERS Safety Report 18990942 (Version 2)
Quarter: 2021Q1

REPORT INFORMATION
  Report Type: Spontaneous
  Country: JP (occurrence: JP)
  Receive Date: 20210310
  Receipt Date: 20210330
  Transmission Date: 20210420
  Serious: Yes (Other)
  Sender: FDA-Public Use
  Company Number: JP-CELGENEUS-JPN-20210200332

PATIENT

DRUGS (5)
  1. REVLIMID [Suspect]
     Active Substance: LENALIDOMIDE
     Dosage: UNKNOWN
     Route: 048
     Dates: start: 201707
  2. LENADEX [Suspect]
     Active Substance: DEXAMETHASONE ACETATE
     Indication: PLASMA CELL MYELOMA
     Dosage: UNKNOWN
     Route: 048
     Dates: start: 201506, end: 201609
  3. REVLIMID [Suspect]
     Active Substance: LENALIDOMIDE
     Indication: PLASMA CELL MYELOMA
     Dosage: UNKNOWN
     Route: 048
     Dates: start: 201506, end: 201609
  4. REVLIMID [Suspect]
     Active Substance: LENALIDOMIDE
     Dosage: UNKNOWN
     Route: 048
  5. LENADEX [Suspect]
     Active Substance: DEXAMETHASONE ACETATE
     Dosage: UNKNOWN
     Route: 048
     Dates: start: 201707

REACTIONS (1)
  - Organising pneumonia [Recovered/Resolved]

NARRATIVE: CASE EVENT DATE: 201901
